FAERS Safety Report 4476586-8 (Version None)
Quarter: 2004Q4

REPORT INFORMATION
  Report Type: 
  Country: None (occurrence: None)
  Receive Date: 20041013
  Receipt Date: 20040924
  Transmission Date: 20050328
  Serious: No
  Sender: FDA-Public Use
  Company Number: USA031254291

PATIENT
  Age: 7 Year
  Sex: Male

DRUGS (1)
  1. STRATTERA [Suspect]
     Indication: ATTENTION DEFICIT/HYPERACTIVITY DISORDER
     Dosage: 25 MG DAY

REACTIONS (1)
  - PRIAPISM [None]
